FAERS Safety Report 17227543 (Version 6)
Quarter: 2022Q1

REPORT INFORMATION
  Report Type: Other
  Country: US (occurrence: None)
  Receive Date: 20200103
  Receipt Date: 20220223
  Transmission Date: 20220424
  Serious: Yes (Hospitalization, Other)
  Sender: FDA-Public Use
  Company Number: US-ROCHE-2510104

PATIENT
  Sex: Male
  Weight: 72.640 kg

DRUGS (5)
  1. OCREVUS [Suspect]
     Active Substance: OCRELIZUMAB
     Indication: Relapsing-remitting multiple sclerosis
     Dosage: DATE OF TREATMENTS: 11/JAN/2019, 15/JUL/2019, 13/FEB/2020, 23/AUG/2020
     Route: 042
     Dates: start: 20181228
  2. OCREVUS [Suspect]
     Active Substance: OCRELIZUMAB
     Indication: Multiple sclerosis
     Route: 042
     Dates: start: 20190111
  3. OCREVUS [Suspect]
     Active Substance: OCRELIZUMAB
     Route: 042
     Dates: start: 20190715
  4. OCREVUS [Suspect]
     Active Substance: OCRELIZUMAB
     Route: 042
     Dates: end: 2020
  5. PREGABALIN [Concomitant]
     Active Substance: PREGABALIN

REACTIONS (10)
  - Sepsis [Recovered/Resolved]
  - Urinary tract infection [Recovered/Resolved]
  - Pneumonia [Recovered/Resolved]
  - Lymphoma [Not Recovered/Not Resolved]
  - Anaemia [Not Recovered/Not Resolved]
  - Neuropathy peripheral [Unknown]
  - Pain [Unknown]
  - Cognitive disorder [Unknown]
  - Spinal deformity [Unknown]
  - Cervical spinal stenosis [Unknown]

NARRATIVE: CASE EVENT DATE: 20200101
